FAERS Safety Report 25685729 (Version 1)
Quarter: 2025Q3

REPORT INFORMATION
  Report Type: Spontaneous
  Country: US (occurrence: US)
  Receive Date: 20250815
  Receipt Date: 20250815
  Transmission Date: 20251021
  Serious: Yes (Other)
  Sender: BAYER HEALTHCARE PHARMACEUTICALS INC.
  Company Number: US-BAYER-2025A107834

PATIENT
  Sex: Female

DRUGS (4)
  1. BETASERON [Suspect]
     Active Substance: INTERFERON BETA-1B
  2. AVONEX [Suspect]
     Active Substance: INTERFERON BETA-1A
  3. COPAXONE [Suspect]
     Active Substance: GLATIRAMER ACETATE
  4. TECFIDERA [Suspect]
     Active Substance: DIMETHYL FUMARATE

REACTIONS (3)
  - Disease progression [Unknown]
  - Adverse drug reaction [None]
  - Treatment failure [None]
